APPROVED DRUG PRODUCT: LUPRON DEPOT-PED KIT
Active Ingredient: LEUPROLIDE ACETATE
Strength: 7.5MG
Dosage Form/Route: POWDER;INTRAMUSCULAR
Application: N020263 | Product #002
Applicant: ABBVIE ENDOCRINE INC
Approved: Apr 16, 1993 | RLD: Yes | RS: Yes | Type: RX